FAERS Safety Report 7162396-X (Version None)
Quarter: 2010Q4

REPORT INFORMATION
  Report Type: 
  Country: None (occurrence: None)
  Receive Date: 20101215
  Receipt Date: 20101209
  Transmission Date: 20110411
  Serious: Yes (Hospitalization)
  Sender: FDA-Public Use
  Company Number: CO-ROCHE-747033

PATIENT
  Sex: Male

DRUGS (1)
  1. CELLCEPT [Suspect]
     Dosage: FREQUENCY: DAILY, TREATMENT SUSPENDED
     Route: 048
     Dates: start: 20050901

REACTIONS (2)
  - HYPERCREATINAEMIA [None]
  - TRANSPLANT REJECTION [None]
